FAERS Safety Report 23837436 (Version 3)
Quarter: 2025Q1

REPORT INFORMATION
  Report Type: Spontaneous
  Country: US (occurrence: US)
  Receive Date: 20240509
  Receipt Date: 20250312
  Transmission Date: 20250409
  Serious: Yes (Other)
  Sender: SANOFI AVENTIS
  Company Number: US-SA-SAC20240507000776

PATIENT
  Sex: Female
  Weight: 77.5 kg

DRUGS (1)
  1. KEVZARA [Suspect]
     Active Substance: SARILUMAB
     Indication: Rheumatoid arthritis
     Dosage: 150 MG, QOW
     Route: 058
     Dates: start: 2020

REACTIONS (4)
  - Seizure [Unknown]
  - Eye pain [Unknown]
  - Visual impairment [Unknown]
  - COVID-19 [Recovering/Resolving]
